FAERS Safety Report 12105773 (Version 1)
Quarter: 2016Q1

REPORT INFORMATION
  Report Type: Spontaneous
  Country: SE (occurrence: SE)
  Receive Date: 20160223
  Receipt Date: 20160223
  Transmission Date: 20160526
  Serious: Yes (Other)
  Sender: FDA-Public Use
  Company Number: SE-ABBVIE-14P-150-1217967-00

PATIENT
  Age: 33 Year
  Sex: Female

DRUGS (1)
  1. HUMIRA [Suspect]
     Active Substance: ADALIMUMAB
     Indication: COLITIS ULCERATIVE
     Route: 058
     Dates: start: 20140314, end: 20140314

REACTIONS (8)
  - Heart rate increased [Unknown]
  - Fatigue [Unknown]
  - Paraesthesia oral [Unknown]
  - Hypoaesthesia [Unknown]
  - Gastrointestinal disorder [Unknown]
  - Paraesthesia [Unknown]
  - Paraesthesia [Unknown]
  - Odynophagia [Unknown]

NARRATIVE: CASE EVENT DATE: 20140314
